FAERS Safety Report 9605270 (Version 2)
Quarter: 2013Q4

REPORT INFORMATION
  Report Type: Report from Study
  Country: ES (occurrence: ES)
  Receive Date: 20131008
  Receipt Date: 20131101
  Transmission Date: 20140711
  Serious: Yes (Hospitalization)
  Sender: FDA-Public Use
  Company Number: ES-VIIV HEALTHCARE LIMITED-B0928094A

PATIENT
  Age: 50 Year
  Sex: Male
  Weight: 97 kg

DRUGS (10)
  1. MARAVIROC [Suspect]
     Indication: HIV INFECTION
     Dosage: 300MG PER DAY
     Route: 048
     Dates: start: 20130228
  2. HIDROFEROL [Concomitant]
     Indication: VITAMIN D DECREASED
     Dosage: 1VIAL PER DAY
     Route: 048
     Dates: start: 20130109
  3. TENOFOVIR [Concomitant]
     Indication: HIV INFECTION
     Dosage: 300MG PER DAY
     Route: 048
     Dates: start: 20110517
  4. EMTRICITABINE [Concomitant]
     Indication: HIV INFECTION
     Dosage: 200MG PER DAY
     Route: 048
     Dates: start: 20110517
  5. ASA [Concomitant]
     Dates: start: 20130917
  6. KLEXANE [Concomitant]
     Dosage: 60MG PER DAY
     Dates: start: 20130212
  7. ENALAPRIL [Concomitant]
     Dosage: 5MG TWICE PER DAY
     Dates: start: 20111027
  8. UNIKET [Concomitant]
     Dosage: 20MG TWICE PER DAY
     Dates: start: 20111027
  9. ATORVASTATIN [Concomitant]
     Dosage: 40MG PER DAY
     Dates: start: 20101127
  10. PLAVIX [Concomitant]
     Dosage: 75MG PER DAY
     Dates: start: 20101127

REACTIONS (1)
  - Acute myocardial infarction [Recovered/Resolved]
